FAERS Safety Report 8560829-5 (Version None)
Quarter: 2012Q3

REPORT INFORMATION
  Report Type: 
  Country: None (occurrence: None)
  Receive Date: 20120802
  Receipt Date: 20120719
  Transmission Date: 20120928
  Serious: Yes (Other)
  Sender: FDA-Public Use
  Company Number: AU-ROCHE-1006969

PATIENT
  Sex: Female

DRUGS (5)
  1. PREDNISONE [Concomitant]
     Indication: RHEUMATOID ARTHRITIS
     Route: 048
  2. ACTEMRA [Suspect]
     Route: 042
     Dates: start: 20110819
  3. LIPITOR [Concomitant]
     Indication: BLOOD CHOLESTEROL
     Route: 048
     Dates: start: 20120601
  4. OMEPRAZOLE [Concomitant]
     Route: 048
     Dates: start: 20110501
  5. ACTEMRA [Suspect]
     Indication: RHEUMATOID ARTHRITIS
     Dosage: 4 MG/KG/DOSE
     Dates: start: 20110727

REACTIONS (1)
  - UPPER LIMB FRACTURE [None]
